FAERS Safety Report 22624200 (Version 1)
Quarter: 2023Q2

REPORT INFORMATION
  Report Type: Spontaneous
  Country: DE (occurrence: None)
  Receive Date: 20230621
  Receipt Date: 20230621
  Transmission Date: 20230721
  Serious: Yes (Other)
  Sender: FDA-Public Use
  Company Number: 2023A139769

PATIENT
  Age: 70 Year
  Sex: Male

DRUGS (1)
  1. LYNPARZA [Suspect]
     Active Substance: OLAPARIB
     Indication: Prostate cancer
     Route: 048
     Dates: start: 202303

REACTIONS (3)
  - Prostatic specific antigen increased [Unknown]
  - Tumour flare [Unknown]
  - Fear of death [Unknown]

NARRATIVE: CASE EVENT DATE: 20230601
